FAERS Safety Report 10718125 (Version 8)
Quarter: 2015Q2

REPORT INFORMATION
  Report Type: Spontaneous
  Country: GB (occurrence: GB)
  Receive Date: 20150117
  Receipt Date: 20150522
  Transmission Date: 20150821
  Serious: Yes (Death, Other)
  Sender: FDA-Public Use
  Company Number: PHFR2015GB000791

PATIENT
  Age: 27 Year
  Sex: Male

DRUGS (4)
  1. CLOZARIL [Suspect]
     Active Substance: CLOZAPINE
     Indication: SCHIZOPHRENIA, UNDIFFERENTIATED TYPE
  2. CLOZARIL [Suspect]
     Active Substance: CLOZAPINE
     Indication: PSYCHOTIC DISORDER
     Dosage: 250 OT, QD
     Route: 048
     Dates: start: 20141112
  3. MINOCYCLINE [Concomitant]
     Active Substance: MINOCYCLINE\MINOCYCLINE HYDROCHLORIDE
     Indication: PSYCHOTIC DISORDER
     Dosage: 300 MG, QD
     Route: 065
  4. SERTRALINE [Concomitant]
     Active Substance: SERTRALINE HYDROCHLORIDE
     Indication: DEPRESSION
     Dosage: 200 MG, QD
     Route: 048

REACTIONS (8)
  - Oropharyngeal pain [Unknown]
  - Pain in extremity [Fatal]
  - Circulatory collapse [Unknown]
  - Nausea [Unknown]
  - Pulmonary embolism [Fatal]
  - Deep vein thrombosis [Fatal]
  - Feeding disorder [Unknown]
  - Chest pain [Fatal]

NARRATIVE: CASE EVENT DATE: 20141210
